FAERS Safety Report 20707168 (Version 2)
Quarter: 2022Q3

REPORT INFORMATION
  Report Type: Spontaneous
  Country: CA (occurrence: CA)
  Receive Date: 20220413
  Receipt Date: 20220718
  Transmission Date: 20221026
  Serious: Yes (Other)
  Sender: FDA-Public Use
  Company Number: CA-TAKEDA-2022TUS024660

PATIENT
  Age: 5 Year
  Sex: Male
  Weight: 16 kg

DRUGS (5)
  1. HUMAN IMMUNOGLOBULIN G [Suspect]
     Active Substance: HUMAN IMMUNOGLOBULIN G
     Indication: Product used for unknown indication
     Dosage: 2 GRAM/KILOGRAM
     Route: 065
     Dates: start: 2019, end: 2019
  2. METHOTREXATE [Suspect]
     Active Substance: METHOTREXATE
     Indication: Dermatomyositis
     Dosage: 10 MILLIGRAM, 1/WEEK
     Route: 065
     Dates: start: 2019, end: 201908
  3. METHYLPREDNISOLONE [Concomitant]
     Active Substance: METHYLPREDNISOLONE
     Dosage: 30 MILLIGRAM/KILOGRAM
     Route: 042
     Dates: start: 2019, end: 2019
  4. PREDNISONE [Concomitant]
     Active Substance: PREDNISONE
     Dosage: 1 MILLIGRAM/KILOGRAM
     Route: 065
  5. PREDNISONE [Concomitant]
     Active Substance: PREDNISONE
     Dosage: 2 MILLIGRAM/KILOGRAM
     Route: 065
     Dates: start: 2019, end: 201907

REACTIONS (4)
  - Condition aggravated [Unknown]
  - Dermatomyositis [Unknown]
  - Meningitis aseptic [Unknown]
  - Off label use [Unknown]

NARRATIVE: CASE EVENT DATE: 20190101
